FAERS Safety Report 22254414 (Version 1)
Quarter: 2023Q2

REPORT INFORMATION
  Report Type: Report from Study
  Country: PH (occurrence: PH)
  Receive Date: 20230426
  Receipt Date: 20230426
  Transmission Date: 20230721
  Serious: Yes (Death)
  Sender: FDA-Public Use
  Company Number: PH-002147023-NVSC2023PH085946

PATIENT

DRUGS (3)
  1. RUXOLITINIB [Suspect]
     Active Substance: RUXOLITINIB
     Indication: Product used for unknown indication
     Dosage: 20 MG, OTHER (1 TABLET 2 TIMES A DAY)
     Route: 048
  2. MELPHALAN [Suspect]
     Active Substance: MELPHALAN
     Indication: Product used for unknown indication
     Dosage: 2 MG, OTHER (1 TABLET PER DAY)
     Route: 048
  3. ANAGRELIDE [Suspect]
     Active Substance: ANAGRELIDE
     Indication: Product used for unknown indication
     Dosage: 500 UG, OTHER (6 CAPSULES A DAY. ONCE WITH MELPHALAN TAKE AT 4 CAPSULES A DAY)
     Route: 050

REACTIONS (1)
  - Death [Fatal]
